FAERS Safety Report 6894673-1 (Version None)
Quarter: 2010Q3

REPORT INFORMATION
  Report Type: 
  Country: None (occurrence: None)
  Receive Date: 20100802
  Receipt Date: 20100729
  Transmission Date: 20110219
  Serious: Yes (Life-Threatening, Hospitalization)
  Sender: FDA-Public Use
  Company Number: TH-BRISTOL-MYERS SQUIBB COMPANY-15216773

PATIENT
  Age: 61 Year
  Sex: Male
  Weight: 40 kg

DRUGS (2)
  1. CETUXIMAB [Suspect]
     Indication: OESOPHAGEAL SQUAMOUS CELL CARCINOMA
     Dosage: RECENT INF ON 21JUL10. CETUXIMAB INTRAVENOUS INF
     Route: 042
     Dates: start: 20100618
  2. CISPLATIN [Suspect]
     Indication: OESOPHAGEAL SQUAMOUS CELL CARCINOMA
     Dosage: RECENT INF ON 07JUL10
     Route: 042
     Dates: start: 20100618

REACTIONS (1)
  - RENAL FAILURE ACUTE [None]
